FAERS Safety Report 16229047 (Version 1)
Quarter: 2019Q2

REPORT INFORMATION
  Report Type: Spontaneous
  Country: US (occurrence: US)
  Receive Date: 20190319
  Receipt Date: 20190319
  Transmission Date: 20190711
  Serious: No
  Sender: FDA-Public Use
  Company Number: None

PATIENT
  Age: 46 Year
  Sex: Female

DRUGS (6)
  1. LUPRON DEPOT [Suspect]
     Active Substance: LEUPROLIDE ACETATE
     Indication: ENDOMETRIOSIS
     Dosage: ?          OTHER DOSE:11.25MG;OTHER FREQUENCY:EVERY 3 MONTHS;?
     Route: 041
     Dates: start: 20180523
  2. IBUPROFEN. [Concomitant]
     Active Substance: IBUPROFEN
  3. IRON [Concomitant]
     Active Substance: IRON
  4. B6 [Concomitant]
     Active Substance: PYRIDOXINE HYDROCHLORIDE
  5. NAPROXEN. [Concomitant]
     Active Substance: NAPROXEN
  6. NORETHINDRONE. [Concomitant]
     Active Substance: NORETHINDRONE

REACTIONS (2)
  - Therapy cessation [None]
  - Hysterectomy [None]

NARRATIVE: CASE EVENT DATE: 20190318
